FAERS Safety Report 25350064 (Version 2)
Quarter: 2025Q2

REPORT INFORMATION
  Report Type: Spontaneous
  Country: CA (occurrence: CA)
  Receive Date: 20250523
  Receipt Date: 20250604
  Transmission Date: 20250716
  Serious: Yes (Hospitalization, Other)
  Sender: IDORSIA PHARMACEUTICALS
  Company Number: CA-IDORSIA-010441-2025-CA

PATIENT
  Age: 17 Year

DRUGS (5)
  1. QUVIVIQ [Suspect]
     Active Substance: DARIDOREXANT
     Indication: Product used for unknown indication
     Route: 048
  2. QUVIVIQ [Suspect]
     Active Substance: DARIDOREXANT
     Dosage: 50 MG, QD
     Route: 048
  3. ESTRADIOL [Concomitant]
     Active Substance: ESTRADIOL
  4. LEUPROLIDE [Concomitant]
     Active Substance: LEUPROLIDE
  5. SERTRALINE [Concomitant]
     Active Substance: SERTRALINE HYDROCHLORIDE
     Dosage: 25 MG, QD
     Route: 048

REACTIONS (3)
  - Overdose [Unknown]
  - Suicide attempt [Recovered/Resolved]
  - Off label use [Unknown]
